FAERS Safety Report 16067320 (Version 1)
Quarter: 2019Q1

REPORT INFORMATION
  Report Type: Report from Study
  Country: FR (occurrence: FR)
  Receive Date: 20190313
  Receipt Date: 20190313
  Transmission Date: 20190418
  Serious: Yes (Other)
  Sender: FDA-Public Use
  Company Number: FR-GLAXOSMITHKLINE-FR2019GSK035208

PATIENT
  Age: 56 Year
  Sex: Female
  Weight: 120 kg

DRUGS (2)
  1. OSELTAMIVIR [Concomitant]
     Active Substance: OSELTAMIVIR
     Dosage: 75 MG, BID
     Dates: start: 2019, end: 2019
  2. ZANAMIVIR [Suspect]
     Active Substance: ZANAMIVIR
     Indication: INFLUENZA
     Dosage: 600 MG, BID
     Route: 042
     Dates: start: 20190215, end: 20190217

REACTIONS (1)
  - Cholestasis [Not Recovered/Not Resolved]

NARRATIVE: CASE EVENT DATE: 20190216
